FAERS Safety Report 6837684-4 (Version None)
Quarter: 2010Q3

REPORT INFORMATION
  Report Type: 
  Country: None (occurrence: None)
  Receive Date: 20100707
  Receipt Date: 20100629
  Transmission Date: 20110219
  Serious: Yes (Other)
  Sender: FDA-Public Use
  Company Number: 2010SP037072

PATIENT
  Age: 46 Year
  Sex: Female
  Weight: 83 kg

DRUGS (8)
  1. CERAZETTE (DESOGESTREL /00754001/) [Suspect]
     Indication: CONTRACEPTION
     Dosage: 0.075 MG; QD; PO
     Route: 048
     Dates: start: 20091101
  2. CERAZETTE (DESOGESTREL /00754001/) [Suspect]
     Indication: UTERINE LEIOMYOMA
     Dosage: 0.075 MG; QD; PO
     Route: 048
     Dates: start: 20091101
  3. ARTICHOKE [Concomitant]
  4. RIVOTRIL [Concomitant]
  5. ESOMEPRAZOLE MAGNESIUM [Concomitant]
  6. PREGABALIN [Concomitant]
  7. TEGASEROD [Concomitant]
  8. NEXIUM [Concomitant]

REACTIONS (8)
  - AMENORRHOEA [None]
  - BLOOD CHOLESTEROL INCREASED [None]
  - CHOLELITHIASIS [None]
  - HEPATIC STEATOSIS [None]
  - KIDNEY INFECTION [None]
  - LIBIDO DECREASED [None]
  - OFF LABEL USE [None]
  - WEIGHT LOSS POOR [None]
